FAERS Safety Report 8004109-5 (Version None)
Quarter: 2011Q4

REPORT INFORMATION
  Report Type: 
  Country: None (occurrence: None)
  Receive Date: 20111222
  Receipt Date: 20111212
  Transmission Date: 20120403
  Serious: Yes (Hospitalization)
  Sender: FDA-Public Use
  Company Number: US-ASTRAZENECA-2011SE62618

PATIENT
  Age: 1037 Month
  Sex: Female
  Weight: 90.7 kg

DRUGS (1)
  1. SEROQUEL [Suspect]
     Indication: SCHIZOPHRENIA
     Route: 048
     Dates: start: 20111001

REACTIONS (5)
  - DEMENTIA [None]
  - BLOOD GLUCOSE INCREASED [None]
  - OFF LABEL USE [None]
  - LOSS OF CONSCIOUSNESS [None]
  - DELIRIUM [None]
